FAERS Safety Report 16406110 (Version 1)
Quarter: 2019Q2

REPORT INFORMATION
  Report Type: Spontaneous
  Country: US (occurrence: US)
  Receive Date: 20190607
  Receipt Date: 20190607
  Transmission Date: 20190711
  Serious: No
  Sender: FDA-Public Use
  Company Number: US-ALLERGAN-1912064US

PATIENT
  Sex: Female

DRUGS (1)
  1. VIBERZI [Suspect]
     Active Substance: ELUXADOLINE
     Indication: IRRITABLE BOWEL SYNDROME
     Dosage: 100 MG AT LUNCH TIME AND 75 MG AT DINNER TIME
     Route: 065
     Dates: start: 2018, end: 20190227

REACTIONS (3)
  - Incorrect dose administered [Unknown]
  - Irritable bowel syndrome [Unknown]
  - Product dose omission [Unknown]
